FAERS Safety Report 8577751-0 (Version None)
Quarter: 2012Q3

REPORT INFORMATION
  Report Type: 
  Country: None (occurrence: None)
  Receive Date: 20120808
  Receipt Date: 20120729
  Transmission Date: 20120928
  Serious: Yes (Other)
  Sender: FDA-Public Use
  Company Number: IT-BRISTOL-MYERS SQUIBB COMPANY-16839151

PATIENT
  Age: 50 Year
  Sex: Female

DRUGS (1)
  1. GLUCOPHAGE [Suspect]
     Indication: INSULIN RESISTANCE
     Route: 048

REACTIONS (4)
  - BREAST DISCOMFORT [None]
  - ABDOMINAL PAIN UPPER [None]
  - OFF LABEL USE [None]
  - POSTMENOPAUSAL HAEMORRHAGE [None]
